FAERS Safety Report 6835918 (Version 2)
Quarter: 2012Q4

REPORT INFORMATION
  Report Type: 
  Country: CA (occurrence: CA)
  Receive Date: 20081208
  Receipt Date: 20121106
  Transmission Date: 20130627
  Serious: Yes (Hospitalization, Other)
  Sender: FDA-Public Use
  Company Number: PHMT2005CA00842

PATIENT
  Age: 64 Year
  Sex: Female

DRUGS (19)
  1. SANDOSTATIN LAR [Suspect]
     Indication: ANGIODYSPLASIA
     Dosage: 30 mg, once a month
     Dates: start: 20051014, end: 20060105
  2. SANDOSTATIN LAR [Suspect]
     Dosage: 30 mg, QMO
     Dates: end: 20060313
  3. ADVAIR [Concomitant]
  4. APO-METOCLOP [Concomitant]
  5. CLONAZEPAM [Concomitant]
  6. DIGOXIN [Concomitant]
  7. FOLIC ACID [Concomitant]
  8. LASIX [Concomitant]
  9. ATORVASTATIN [Concomitant]
  10. LOSEC                                   /CAN/ [Concomitant]
  11. NITRO PATCH [Concomitant]
  12. NOVIRASIN [Concomitant]
  13. PLAVIX [Concomitant]
  14. PMS-CONJUGATED ESTROGENS [Concomitant]
  15. TIOTROPIUM BROMIDE [Concomitant]
  16. SYNTHROID [Concomitant]
  17. VERAPAMIL [Concomitant]
     Indication: HYPERTENSION
  18. VITAMIN B12 [Concomitant]
     Route: 048
  19. VITAMIN B6 [Concomitant]

REACTIONS (21)
  - Lung infection [Unknown]
  - Renal disorder [Unknown]
  - Renal impairment [Unknown]
  - Anal haemorrhage [Unknown]
  - Haemoglobin decreased [Unknown]
  - Renal failure [Unknown]
  - Blood creatine increased [Unknown]
  - Hypertension [Unknown]
  - Dyspnoea [Unknown]
  - Rash [Unknown]
  - Epistaxis [Unknown]
  - Blood pressure fluctuation [Unknown]
  - Hypotension [Unknown]
  - Injection site induration [Unknown]
  - Injection site pruritus [Unknown]
  - Blood iron decreased [Unknown]
  - Injection site reaction [Unknown]
  - Nausea [Unknown]
  - Abdominal pain [Unknown]
  - Asthenia [Unknown]
  - Heart rate decreased [Unknown]
